FAERS Safety Report 4340739-X (Version None)
Quarter: 2004Q2

REPORT INFORMATION
  Report Type: 
  Country: None (occurrence: None)
  Receive Date: 20040414
  Receipt Date: 20040331
  Transmission Date: 20050107
  Serious: Yes (Life-Threatening)
  Sender: FDA-Public Use
  Company Number: BEI-003847

PATIENT
  Age: 71 Year
  Sex: Male

DRUGS (2)
  1. PROHANCE [Suspect]
     Indication: MUSCLE ATROPHY
     Dosage: 12 ML IV
     Route: 042
     Dates: start: 20031006, end: 20031006
  2. PROHANCE [Suspect]
     Indication: SPINAL CORD NEOPLASM
     Dosage: 12 ML IV
     Route: 042
     Dates: start: 20031006, end: 20031006

REACTIONS (14)
  - ANAPHYLACTIC SHOCK [None]
  - CARDIO-RESPIRATORY ARREST [None]
  - CHOKING [None]
  - CONTRAST MEDIA REACTION [None]
  - DISORIENTATION [None]
  - ELECTROMECHANICAL DISSOCIATION [None]
  - LOSS OF CONSCIOUSNESS [None]
  - MEMORY IMPAIRMENT [None]
  - PLEURAL EFFUSION [None]
  - PNEUMONIA ASPIRATION [None]
  - PROCEDURAL COMPLICATION [None]
  - RETROGRADE AMNESIA [None]
  - TACHYPNOEA [None]
  - VENTRICULAR FIBRILLATION [None]
